FAERS Safety Report 7522778-0 (Version None)
Quarter: 2011Q2

REPORT INFORMATION
  Report Type: 
  Country: None (occurrence: None)
  Receive Date: 20110603
  Receipt Date: 20110520
  Transmission Date: 20111010
  Serious: Yes (Hospitalization, Other)
  Sender: FDA-Public Use
  Company Number: PT-JNJFOC-20100503376

PATIENT
  Sex: Male

DRUGS (2)
  1. REMICADE [Suspect]
     Indication: CROHN'S DISEASE
     Dosage: 2 INFUSIONS TOTAL
     Route: 042
     Dates: start: 20100301, end: 20100401
  2. AZATHIOPRINE [Concomitant]
     Dates: start: 20070101, end: 20100401

REACTIONS (1)
  - SMALL INTESTINE CARCINOMA [None]
